FAERS Safety Report 6869458-2 (Version None)
Quarter: 2010Q3

REPORT INFORMATION
  Report Type: 
  Country: None (occurrence: None)
  Receive Date: 20100722
  Receipt Date: 20080912
  Transmission Date: 20110219
  Serious: No
  Sender: FDA-Public Use
  Company Number: US-PFIZER INC-2008061623

PATIENT
  Sex: Female
  Weight: 56.8 kg

DRUGS (3)
  1. CHANTIX [Suspect]
     Indication: SMOKING CESSATION THERAPY
     Dates: start: 20080710
  2. ALL OTHER THERAPEUTIC PRODUCTS [Concomitant]
  3. CHOLESTEROL- AND TRIGLYCERIDE REDUCERS [Concomitant]

REACTIONS (4)
  - DRUG DOSE OMISSION [None]
  - GAIT DISTURBANCE [None]
  - INSOMNIA [None]
  - NOCTURIA [None]
